FAERS Safety Report 22310673 (Version 1)
Quarter: 2023Q2

REPORT INFORMATION
  Report Type: Spontaneous
  Country: BR (occurrence: BR)
  Receive Date: 20230511
  Receipt Date: 20230511
  Transmission Date: 20230722
  Serious: Yes (Other)
  Sender: FDA-Public Use
  Company Number: BR-AstraZeneca-2023A106924

PATIENT
  Age: 621 Day
  Sex: Male
  Weight: 10 kg

DRUGS (4)
  1. SYNAGIS [Suspect]
     Active Substance: PALIVIZUMAB
     Indication: Lung disorder
     Dosage: 1G/ML MONTHLY
     Route: 030
     Dates: start: 20230328, end: 20230328
  2. MYRAFER [Concomitant]
     Indication: Product used for unknown indication
  3. ADTIL [Concomitant]
     Indication: Product used for unknown indication
  4. BECLOMETHASONE DIPROPIONATE [Concomitant]
     Active Substance: BECLOMETHASONE DIPROPIONATE
     Indication: Product used for unknown indication
     Route: 055

REACTIONS (4)
  - Cyanosis [Recovered/Resolved]
  - Hypotonic-hyporesponsive episode [Recovered/Resolved]
  - Non-epileptic paroxysmal event [Recovered/Resolved]
  - Product administration error [Unknown]

NARRATIVE: CASE EVENT DATE: 20230331
